FAERS Safety Report 19678651 (Version 1)
Quarter: 2021Q3

REPORT INFORMATION
  Report Type: Spontaneous
  Country: FR (occurrence: FR)
  Receive Date: 20210809
  Receipt Date: 20210809
  Transmission Date: 20211014
  Serious: Yes (Disabling)
  Sender: FDA-Public Use
  Company Number: None

PATIENT
  Age: 57 Year
  Sex: Female
  Weight: 38 kg

DRUGS (1)
  1. AMOXICILLINE ACIDE CLAVULANIQUE (ANTIBIOTIC) [Suspect]
     Active Substance: AMOXICILLIN\CLAVULANIC ACID
     Indication: TOOTH DISORDER
     Dosage: ?          QUANTITY:2 TABLET(S);?
     Route: 048
     Dates: start: 20210408, end: 20210808

REACTIONS (12)
  - Muscle spasms [None]
  - Headache [None]
  - Swelling [None]
  - Spleen disorder [None]
  - Product use issue [None]
  - Thermal burn [None]
  - Cardiac disorder [None]
  - Syncope [None]
  - Diarrhoea [None]
  - Prescribed overdose [None]
  - Seizure [None]
  - Vomiting [None]

NARRATIVE: CASE EVENT DATE: 20210508
